FAERS Safety Report 24006555 (Version 1)
Quarter: 2024Q2

REPORT INFORMATION
  Report Type: Spontaneous
  Country: US (occurrence: US)
  Receive Date: 20240624
  Receipt Date: 20240624
  Transmission Date: 20240716
  Serious: No
  Sender: FDA-Public Use
  Company Number: US-SA-2023SA321538

PATIENT
  Age: 41 Year
  Sex: Female

DRUGS (3)
  1. DUPIXENT [Suspect]
     Active Substance: DUPILUMAB
     Indication: Asthma
     Dosage: 300 MG, QOW
     Route: 058
     Dates: start: 202301
  2. NYSTATIN [Suspect]
     Active Substance: NYSTATIN
     Dosage: UNK
     Route: 048
  3. ITRACONAZOLE [Suspect]
     Active Substance: ITRACONAZOLE
     Dosage: UNK

REACTIONS (5)
  - Drug hypersensitivity [Unknown]
  - Flushing [Unknown]
  - Swelling face [Unknown]
  - Rash [Unknown]
  - Injection site pain [Unknown]
